FAERS Safety Report 17704016 (Version 1)
Quarter: 2020Q2

REPORT INFORMATION
  Report Type: Spontaneous
  Country: NG (occurrence: US)
  Receive Date: 20200423
  Receipt Date: 20200423
  Transmission Date: 20200714
  Serious: Yes (Life-Threatening)
  Sender: FDA-Public Use
  Company Number: None

PATIENT
  Age: 20 Month
  Sex: Female

DRUGS (1)
  1. ACIPRO CIPROFLOXACIN TABLET U.S.B 500MG [Suspect]
     Active Substance: CIPROFLOXACIN

REACTIONS (4)
  - Oropharyngeal pain [None]
  - Abnormal faeces [None]
  - Dyspnoea [None]
  - Renal disorder [None]

NARRATIVE: CASE EVENT DATE: 20200402
